FAERS Safety Report 11495950 (Version 2)
Quarter: 2015Q3

REPORT INFORMATION
  Report Type: Spontaneous
  Country: BE (occurrence: BE)
  Receive Date: 20150911
  Receipt Date: 20150918
  Transmission Date: 20151125
  Serious: Yes (Hospitalization)
  Sender: FDA-Public Use
  Company Number: BE-GLAXOSMITHKLINE-BE2015GSK092976

PATIENT
  Age: 60 Year
  Sex: Female

DRUGS (3)
  1. DEPAKINE CHRONO [Concomitant]
     Active Substance: VALPROATE SODIUM
  2. RIVOTRIL [Concomitant]
     Active Substance: CLONAZEPAM
  3. VOTRIENT [Suspect]
     Active Substance: PAZOPANIB HYDROCHLORIDE
     Indication: METASTATIC RENAL CELL CARCINOMA
     Dosage: UNK
     Dates: start: 201504

REACTIONS (9)
  - Pruritus [Unknown]
  - Dry skin [Unknown]
  - Type IV hypersensitivity reaction [Recovered/Resolved]
  - Burning sensation [Unknown]
  - Liver function test abnormal [Recovering/Resolving]
  - Rash [Unknown]
  - Aspartate aminotransferase increased [Unknown]
  - Alanine aminotransferase increased [Unknown]
  - Eczema asteatotic [Unknown]

NARRATIVE: CASE EVENT DATE: 20150526
